FAERS Safety Report 7763266-6 (Version None)
Quarter: 2011Q3

REPORT INFORMATION
  Report Type: 
  Country: None (occurrence: None)
  Receive Date: 20110920
  Receipt Date: 20110906
  Transmission Date: 20111222
  Serious: Yes (Other)
  Sender: FDA-Public Use
  Company Number: US-ENDO PHARMACEUTICALS INC.-OPER20110220

PATIENT
  Sex: Male

DRUGS (2)
  1. OPANA ER [Suspect]
     Route: 048
  2. OPANA ER [Suspect]
     Route: 048

REACTIONS (5)
  - BURNING SENSATION [None]
  - HEADACHE [None]
  - MEDICATION ERROR [None]
  - DIZZINESS [None]
  - NAUSEA [None]
